FAERS Safety Report 5828983-3 (Version None)
Quarter: 2008Q3

REPORT INFORMATION
  Report Type: 
  Country: None (occurrence: None)
  Receive Date: 20080731
  Receipt Date: 20080723
  Transmission Date: 20090109
  Serious: Yes (Hospitalization)
  Sender: FDA-Public Use
  Company Number: PHBS2008US05199

PATIENT
  Age: 43 Year
  Sex: Female

DRUGS (12)
  1. DEFERASIROX [Suspect]
     Indication: IRON OVERLOAD
     Dosage: 1500 MG, DAY
  2. DEFERASIROX [Suspect]
     Indication: SICKLE CELL ANAEMIA
  3. ATENOLOL [Concomitant]
  4. AMLODIPINE [Concomitant]
  5. LISINOPRIL [Concomitant]
  6. LANTHANUM CARBONATE [Concomitant]
  7. ALLOPURINOL [Concomitant]
  8. MULTI-VITAMINS [Concomitant]
  9. FOLIC ACID [Concomitant]
  10. PARICALCITOL [Concomitant]
  11. DARBEPOETIN ALFA [Concomitant]
  12. LOSARTAN POTASSIUM [Concomitant]

REACTIONS (3)
  - BRADYPHRENIA [None]
  - HYPOCALCAEMIA [None]
  - PARAESTHESIA [None]
